FAERS Safety Report 7509079-1 (Version None)
Quarter: 2011Q2

REPORT INFORMATION
  Report Type: 
  Country: None (occurrence: None)
  Receive Date: 20110527
  Receipt Date: 20110520
  Transmission Date: 20111010
  Serious: Yes (Other)
  Sender: FDA-Public Use
  Company Number: US-US-EMD SERONO, INC.-7009639

PATIENT
  Sex: Female

DRUGS (3)
  1. DYNACIRC [Concomitant]
     Indication: HYPERTENSION
  2. BENICAR [Concomitant]
     Indication: HYPERTENSION
  3. REBIF [Suspect]
     Indication: MULTIPLE SCLEROSIS
     Route: 058
     Dates: start: 20030515

REACTIONS (2)
  - HEPATIC ENZYME INCREASED [None]
  - BREAST CANCER IN SITU [None]
